FAERS Safety Report 8963813 (Version 1)
Quarter: 2012Q4

REPORT INFORMATION
  Report Type: 
  Country: AU (occurrence: AU)
  Receive Date: 20121214
  Receipt Date: 20121214
  Transmission Date: 20130627
  Serious: Yes (Other)
  Sender: FDA-Public Use
  Company Number: PHHY2012AU114199

PATIENT
  Sex: Female

DRUGS (2)
  1. TASIGNA [Suspect]
     Indication: CHRONIC MYELOID LEUKAEMIA
     Dosage: 800 mg, UNK
     Route: 048
     Dates: start: 20111201
  2. ZANIDIP [Concomitant]

REACTIONS (2)
  - Hypothyroidism [Unknown]
  - Hyperthyroidism [Unknown]
